FAERS Safety Report 18101520 (Version 4)
Quarter: 2021Q1

REPORT INFORMATION
  Report Type: Spontaneous
  Country: DE (occurrence: DE)
  Receive Date: 20200801
  Receipt Date: 20210218
  Transmission Date: 20210419
  Serious: Yes (Death, Hospitalization)
  Sender: FDA-Public Use
  Company Number: DE-TEVA-2020-DE-1807634

PATIENT
  Age: 55 Year
  Sex: Female
  Weight: 81.3 kg

DRUGS (16)
  1. ETOPOSIDE. [Suspect]
     Active Substance: ETOPOSIDE
     Indication: PLASMA CELL MYELOMA
     Dates: start: 20200423, end: 20200426
  2. CYCLOPHOSPHAMIDE. [Suspect]
     Active Substance: CYCLOPHOSPHAMIDE
     Dosage: 561 MILLIGRAM DAILY;
     Route: 042
     Dates: start: 20181121, end: 20181123
  3. NEUPOGEN [Concomitant]
     Active Substance: FILGRASTIM
     Dates: start: 20200423, end: 20200423
  4. POTASSIUM CHLORIDE. [Concomitant]
     Active Substance: POTASSIUM CHLORIDE
     Indication: HYPOKALAEMIA
     Dates: start: 20200427, end: 20200427
  5. BB2121 (T LYMPHOCYTES) [Concomitant]
     Indication: PLASMA CELL MYELOMA
     Dosage: 339.25 X 10E6 CAR PLUS T CELLS, SINGLE, IV
     Route: 042
     Dates: start: 20181126, end: 20181126
  6. CYCLOPHOSPHAMIDE. [Suspect]
     Active Substance: CYCLOPHOSPHAMIDE
     Indication: PLASMA CELL MYELOMA
     Dosage: 400 MG/M2 DAILY;
     Route: 042
     Dates: start: 20200423, end: 20200426
  7. NEUPOGEN [Concomitant]
     Active Substance: FILGRASTIM
     Dates: start: 20200317, end: 20200319
  8. NEUPOGEN [Concomitant]
     Active Substance: FILGRASTIM
     Dates: start: 20200402, end: 20200404
  9. DOXORUBICIN [Suspect]
     Active Substance: DOXORUBICIN
     Dosage: 10 MILLIGRAM DAILY;
     Dates: start: 20200423, end: 20200426
  10. DEXAMETHASONE. [Suspect]
     Active Substance: DEXAMETHASONE
     Indication: PLASMA CELL MYELOMA
     Dosage: 40 MILLIGRAM DAILY;
     Dates: start: 20200423, end: 20200426
  11. THALIDOMIDE [Suspect]
     Active Substance: THALIDOMIDE
     Indication: PLASMA CELL MYELOMA
     Dosage: 100 MILLIGRAM DAILY; IND 44.320, NDA 020785
     Route: 048
     Dates: start: 20200423, end: 20200426
  12. COTRIMAZOL [Concomitant]
     Active Substance: SULFAMETHOXAZOLE\TRIMETHOPRIM
     Indication: INFECTION PROPHYLAXIS
     Route: 048
     Dates: start: 20060710, end: 20200424
  13. NEUPOGEN [Concomitant]
     Active Substance: FILGRASTIM
     Dates: start: 20200422, end: 20200422
  14. FLUDARABINE [Concomitant]
     Active Substance: FLUDARABINE PHOSPHATE
     Indication: PLASMA CELL MYELOMA
     Dosage: 56.1 MILLIGRAM DAILY;
     Route: 042
     Dates: start: 20181121, end: 20181123
  15. BORTEZOMIB. [Suspect]
     Active Substance: BORTEZOMIB
     Indication: PLASMA CELL MYELOMA
     Dates: start: 20200423, end: 20200426
  16. CISPLATIN. [Suspect]
     Active Substance: CISPLATIN
     Indication: PLASMA CELL MYELOMA
     Dosage: 10 MG/M2 DAILY;
     Dates: start: 20200423, end: 20200426

REACTIONS (2)
  - Septic shock [Fatal]
  - Pneumonia [Not Recovered/Not Resolved]

NARRATIVE: CASE EVENT DATE: 20200427
